FAERS Safety Report 15221630 (Version 1)
Quarter: 2018Q3

REPORT INFORMATION
  Report Type: Spontaneous
  Country: JP (occurrence: JP)
  Receive Date: 20180731
  Receipt Date: 20180731
  Transmission Date: 20181010
  Serious: Yes (Other)
  Sender: FDA-Public Use
  Company Number: JP-BAYER-2018-141311

PATIENT
  Age: 63 Year
  Sex: Male
  Weight: 75 kg

DRUGS (11)
  1. BAYASPIRIN 100 MG [Suspect]
     Active Substance: ASPIRIN
     Indication: CEREBRAL INFARCTION
     Dosage: 100 MG, QD
     Route: 048
  2. BETAHISTINE [Concomitant]
     Active Substance: BETAHISTINE
  3. AMLODIPINE BESILATE [Concomitant]
     Active Substance: AMLODIPINE BESYLATE
  4. SOFTEAR [Concomitant]
     Active Substance: CYANOCOBALAMIN
  5. PLAVIX [Suspect]
     Active Substance: CLOPIDOGREL BISULFATE
     Indication: CEREBRAL INFARCTION
     Dosage: 25 MG, QD
     Route: 048
     Dates: start: 20180609, end: 20180709
  6. ONGLYZA [Concomitant]
     Active Substance: SAXAGLIPTIN HYDROCHLORIDE
  7. KARY UNI [Concomitant]
     Active Substance: PIRENOXINE
  8. VALSARTAN. [Concomitant]
     Active Substance: VALSARTAN
  9. CILOSTAZOL. [Concomitant]
     Active Substance: CILOSTAZOL
     Dosage: UNK
     Dates: end: 20180609
  10. TAFLUPROST [Concomitant]
     Active Substance: TAFLUPROST
  11. LANSOPRAZOLE. [Suspect]
     Active Substance: LANSOPRAZOLE
     Indication: PROPHYLAXIS
     Dosage: 15 MG, QD
     Route: 048
     Dates: end: 20180709

REACTIONS (3)
  - Pruritus [Recovering/Resolving]
  - Toxic skin eruption [Recovering/Resolving]
  - Rash papular [Recovering/Resolving]

NARRATIVE: CASE EVENT DATE: 20170830
